FAERS Safety Report 5019725-2 (Version None)
Quarter: 2006Q2

REPORT INFORMATION
  Report Type: 
  Country: None (occurrence: None)
  Receive Date: 20060601
  Receipt Date: 20060522
  Transmission Date: 20061013
  Serious: Yes (Hospitalization)
  Sender: FDA-Public Use
  Company Number: 2006067299

PATIENT
  Age: 68 Year
  Sex: Male

DRUGS (9)
  1. TAHOR (ATORVASTATIN) [Suspect]
     Indication: ILL-DEFINED DISORDER
     Dosage: ORAL
     Route: 048
     Dates: start: 20060213, end: 20060220
  2. ENOXAPARIN SODIUM [Suspect]
     Indication: ILL-DEFINED DISORDER
     Dosage: SUBCUTANEOUS
     Route: 058
     Dates: start: 20060213, end: 20060217
  3. CARVEDILOL [Suspect]
     Indication: ILL-DEFINED DISORDER
     Dosage: ORAL
     Route: 048
     Dates: start: 20060213, end: 20060220
  4. PERINDOPRIL (PERINDOPRIL) [Suspect]
     Indication: ILL-DEFINED DISORDER
     Dosage: ORAL
     Route: 048
     Dates: start: 20060213, end: 20060220
  5. IODIXANOL (IODIXANOL) [Concomitant]
  6. CLOPIDOGREL BISULFATE [Concomitant]
  7. ACETYLSALICYLATE LYSINE (ACETYLSALICYLATE LYSINE) [Concomitant]
  8. EPTIFIBATIDE (EPTIFIBATIDE) [Concomitant]
  9. CETIRIZINE (CETIRIZINE) [Concomitant]

REACTIONS (6)
  - ALANINE AMINOTRANSFERASE INCREASED [None]
  - BLOOD CREATININE INCREASED [None]
  - EOSINOPHILIA [None]
  - GAMMA-GLUTAMYLTRANSFERASE INCREASED [None]
  - MYOCARDIAL INFARCTION [None]
  - RASH MACULO-PAPULAR [None]
